FAERS Safety Report 14174791 (Version 1)
Quarter: 2017Q4

REPORT INFORMATION
  Report Type: Report from Study
  Country: US (occurrence: US)
  Receive Date: 20171109
  Receipt Date: 20171109
  Transmission Date: 20180321
  Serious: Yes (Other)
  Sender: FDA-Public Use
  Company Number: US-TAKEDA-2017TUS021851

PATIENT
  Age: 65 Year
  Sex: Male

DRUGS (1)
  1. VORTIOXETINE. [Suspect]
     Active Substance: VORTIOXETINE
     Indication: PRODUCT USED FOR UNKNOWN INDICATION
     Dosage: UNK
     Route: 065

REACTIONS (9)
  - Decreased appetite [Unknown]
  - Weight decreased [Unknown]
  - Diabetic neuropathy [Unknown]
  - Disturbance in attention [Unknown]
  - Nausea [Unknown]
  - Depressed mood [Unknown]
  - Drug ineffective [Unknown]
  - Condition aggravated [Unknown]
  - Abdominal operation [Unknown]

NARRATIVE: CASE EVENT DATE: 201710
